FAERS Safety Report 9143160 (Version 1)
Quarter: 2013Q1

REPORT INFORMATION
  Report Type: Spontaneous
  Country: US (occurrence: US)
  Receive Date: 20130306
  Receipt Date: 20130306
  Transmission Date: 20140127
  Serious: No
  Sender: FDA-Public Use
  Company Number: US-ENDO PHARMACEUTICALS INC.-OPCR20121767

PATIENT
  Age: 46 Year
  Sex: Female

DRUGS (1)
  1. OPANA ER 5MG [Suspect]
     Indication: BLADDER PAIN
     Dosage: 5MG
     Route: 048
     Dates: start: 20120815, end: 20120815

REACTIONS (3)
  - Cystitis interstitial [Not Recovered/Not Resolved]
  - Condition aggravated [Not Recovered/Not Resolved]
  - Drug ineffective [Recovered/Resolved]
